FAERS Safety Report 7333554-6 (Version None)
Quarter: 2011Q1

REPORT INFORMATION
  Report Type: 
  Country: None (occurrence: None)
  Receive Date: 20110304
  Receipt Date: 20110221
  Transmission Date: 20110831
  Serious: Yes (Other)
  Sender: FDA-Public Use
  Company Number: US-B.I. PHARMACEUTICALS,INC./RIDGEFIELD-2011-BP-06211BP

PATIENT
  Sex: Female

DRUGS (4)
  1. COTREL [Concomitant]
     Indication: HYPERTENSION
  2. CLONIDINE [Concomitant]
     Indication: HYPERTENSION
  3. SPIRIVA [Suspect]
     Indication: CHRONIC OBSTRUCTIVE PULMONARY DISEASE
     Dosage: 18 MCG
     Route: 055
  4. METOPROLOL [Concomitant]
     Indication: HYPERTENSION

REACTIONS (1)
  - MACULAR DEGENERATION [None]
